FAERS Safety Report 18618546 (Version 1)
Quarter: 2020Q4

REPORT INFORMATION
  Report Type: Spontaneous
  Country: US (occurrence: US)
  Receive Date: 20201215
  Receipt Date: 20201215
  Transmission Date: 20210114
  Serious: No
  Sender: FDA-Public Use
  Company Number: US-ASTRAZENECA-2020SF65174

PATIENT
  Age: 39 Year
  Sex: Male

DRUGS (1)
  1. ZOMIG [Suspect]
     Active Substance: ZOLMITRIPTAN
     Indication: HEADACHE
     Dosage: 1 SPRAY(2.5 MG)2.5MG UNKNOWN
     Route: 045

REACTIONS (2)
  - Illness [Unknown]
  - Weight decreased [Unknown]
